FAERS Safety Report 26193264 (Version 1)
Quarter: 2025Q4

REPORT INFORMATION
  Report Type: Spontaneous
  Country: US (occurrence: None)
  Receive Date: 20251223
  Receipt Date: 20251223
  Transmission Date: 20260117
  Serious: Yes (Hospitalization)
  Sender: FDA-CTU
  Company Number: None

PATIENT
  Age: 61 Year
  Sex: Male
  Weight: 79.2 kg

DRUGS (1)
  1. DALVANCE [Suspect]
     Active Substance: DALBAVANCIN HYDROCHLORIDE
     Indication: Skin infection
     Dosage: 1500 MG ONCE INTRAVENOS
     Route: 042
     Dates: start: 20251222, end: 20251222

REACTIONS (6)
  - Dyspnoea [None]
  - Ear swelling [None]
  - Oxygen saturation decreased [None]
  - Blood pressure immeasurable [None]
  - Ear pruritus [None]
  - Hyponatraemia [None]

NARRATIVE: CASE EVENT DATE: 20251222
